FAERS Safety Report 10243257 (Version 1)
Quarter: 2014Q2

REPORT INFORMATION
  Report Type: Spontaneous
  Country: US (occurrence: None)
  Receive Date: 20140616
  Receipt Date: 20140616
  Transmission Date: 20141212
  Serious: Yes (Hospitalization)
  Sender: FDA-Public Use
  Company Number: None

PATIENT
  Age: 33 Year
  Sex: Female
  Weight: 64.41 kg

DRUGS (3)
  1. HUMIRA [Suspect]
     Indication: POLYARTHRITIS
     Route: 030
     Dates: start: 20140319, end: 20140613
  2. TRI-SPRINTEC [Concomitant]
  3. IBUPROFEN [Concomitant]

REACTIONS (8)
  - Influenza like illness [None]
  - Nausea [None]
  - Vomiting [None]
  - Abdominal pain [None]
  - Diarrhoea [None]
  - Sinusitis [None]
  - Chills [None]
  - Serum sickness [None]
